FAERS Safety Report 7005199-9 (Version None)
Quarter: 2010Q3

REPORT INFORMATION
  Report Type: 
  Country: None (occurrence: None)
  Receive Date: 20100921
  Receipt Date: 20100909
  Transmission Date: 20110219
  Serious: No
  Sender: FDA-Public Use
  Company Number: US-BAYER-201033191NA

PATIENT
  Age: 26 Year
  Sex: Female

DRUGS (2)
  1. MAGNEVIST [Suspect]
     Indication: NUCLEAR MAGNETIC RESONANCE IMAGING BRAIN
     Dosage: AS USED: 20 ML  UNIT DOSE: 20 ML
     Dates: start: 20100909, end: 20100909
  2. MAGNEVIST [Suspect]
     Dosage: AS USED: 0.4 ML  UNIT DOSE: 5 ML
     Dates: start: 20100909, end: 20100909

REACTIONS (1)
  - URTICARIA [None]
